FAERS Safety Report 12409664 (Version 1)
Quarter: 2016Q2

REPORT INFORMATION
  Report Type: Spontaneous
  Country: US (occurrence: US)
  Receive Date: 20160526
  Receipt Date: 20160526
  Transmission Date: 20160815
  Serious: No
  Sender: FDA-Public Use
  Company Number: US-JAZZ-2015-US-015834

PATIENT
  Sex: Female

DRUGS (31)
  1. XYREM [Suspect]
     Active Substance: SODIUM OXYBATE
     Dosage: 2.5 G, BID
     Route: 048
     Dates: start: 200712, end: 201109
  2. CETIRIZINE HCL [Concomitant]
     Active Substance: CETIRIZINE HYDROCHLORIDE
     Indication: PRODUCT USED FOR UNKNOWN INDICATION
     Dosage: UNK
     Dates: start: 20150918
  3. XYREM [Suspect]
     Active Substance: SODIUM OXYBATE
     Dosage: 3 G, BID
     Route: 048
     Dates: start: 201109, end: 2012
  4. XYREM [Suspect]
     Active Substance: SODIUM OXYBATE
     Dosage: DOSE ADJUSTMENTS
     Route: 048
  5. KLONOPIN [Concomitant]
     Active Substance: CLONAZEPAM
     Indication: SLEEP DISORDER
     Dosage: UNK
     Dates: start: 20130710
  6. LAMICTAL [Concomitant]
     Active Substance: LAMOTRIGINE
     Indication: AFFECTIVE DISORDER
     Dosage: UNK
     Dates: start: 20150918
  7. OPANA ER [Concomitant]
     Active Substance: OXYMORPHONE HYDROCHLORIDE
     Indication: PRODUCT USED FOR UNKNOWN INDICATION
     Dosage: UNK
     Dates: start: 20150918
  8. SYNTHROID [Concomitant]
     Active Substance: LEVOTHYROXINE SODIUM
     Indication: PRODUCT USED FOR UNKNOWN INDICATION
     Dosage: UNK
     Dates: start: 20120419, end: 20121201
  9. XYREM [Suspect]
     Active Substance: SODIUM OXYBATE
     Dosage: 3 G, BID
     Route: 048
     Dates: start: 201209, end: 201210
  10. TRAMADOL. [Concomitant]
     Active Substance: TRAMADOL
     Indication: NEURALGIA
     Dosage: UNK UNK, PRN
     Dates: start: 20150918
  11. NALOXONE HYDROCHLORIDE. [Concomitant]
     Active Substance: NALOXONE HYDROCHLORIDE
     Indication: PRODUCT USED FOR UNKNOWN INDICATION
     Dosage: UNK
     Dates: start: 20120119, end: 20120901
  12. CYTOMEL [Concomitant]
     Active Substance: LIOTHYRONINE SODIUM
     Indication: PRODUCT USED FOR UNKNOWN INDICATION
     Dosage: UNK
     Dates: start: 20120419, end: 20121201
  13. XYREM [Suspect]
     Active Substance: SODIUM OXYBATE
     Dosage: 4.5 G, BID
     Route: 048
     Dates: start: 2015
  14. SINGULAIR [Concomitant]
     Active Substance: MONTELUKAST SODIUM
     Indication: HYPERSENSITIVITY
     Dosage: UNK
     Dates: start: 20130424
  15. LIDOCAINE HCL [Concomitant]
     Active Substance: LIDOCAINE HYDROCHLORIDE
     Indication: PRODUCT USED FOR UNKNOWN INDICATION
     Dosage: UNK
     Dates: start: 20150918
  16. PROAIR HFA [Concomitant]
     Active Substance: ALBUTEROL SULFATE
     Indication: PRODUCT USED FOR UNKNOWN INDICATION
     Dosage: UNK
     Dates: start: 20150918
  17. CLARITIN [Concomitant]
     Active Substance: LORATADINE
     Indication: PRODUCT USED FOR UNKNOWN INDICATION
     Dosage: UNK
     Dates: start: 20130424, end: 20150918
  18. PEPCID AC [Concomitant]
     Active Substance: FAMOTIDINE
     Indication: PRODUCT USED FOR UNKNOWN INDICATION
     Dosage: UNK
     Dates: start: 20130101, end: 20150918
  19. XYREM [Suspect]
     Active Substance: SODIUM OXYBATE
     Dosage: 6 G, BID
     Route: 048
     Dates: start: 201308, end: 2014
  20. WELLBUTRIN [Concomitant]
     Active Substance: BUPROPION HYDROCHLORIDE
     Indication: DEPRESSION
     Dosage: UNK
     Dates: start: 20150918
  21. NASOCORT [Concomitant]
     Active Substance: BUDESONIDE
     Indication: HYPERSENSITIVITY
     Dosage: UNK
     Dates: start: 20150918
  22. ALBUTEROL. [Concomitant]
     Active Substance: ALBUTEROL
     Indication: HYPERSENSITIVITY
     Dosage: UNK
  23. EFFEXOR XR [Concomitant]
     Active Substance: VENLAFAXINE HYDROCHLORIDE
     Indication: PRODUCT USED FOR UNKNOWN INDICATION
     Dosage: UNK
     Dates: start: 20130710, end: 20150918
  24. XYREM [Suspect]
     Active Substance: SODIUM OXYBATE
     Indication: INSOMNIA
     Dosage: 2.25 G, BID
     Route: 048
     Dates: start: 200705, end: 200712
  25. OXYMORPHONE [Concomitant]
     Active Substance: OXYMORPHONE
     Indication: MYALGIA
     Dosage: UNK
  26. FLONASE [Concomitant]
     Active Substance: FLUTICASONE PROPIONATE
     Indication: PRODUCT USED FOR UNKNOWN INDICATION
     Dosage: UNK
     Dates: start: 20150918, end: 20150918
  27. XYREM [Suspect]
     Active Substance: SODIUM OXYBATE
     Dosage: 2.5 G, BID
     Route: 048
     Dates: start: 20151002, end: 2015
  28. SEROQUEL [Concomitant]
     Active Substance: QUETIAPINE FUMARATE
     Indication: SLEEP DISORDER
     Dosage: UNK
     Dates: start: 20150918
  29. BENADRYL ALLERGY [Concomitant]
     Active Substance: DIPHENHYDRAMINE HYDROCHLORIDE
     Indication: PRODUCT USED FOR UNKNOWN INDICATION
     Dosage: UNK
     Dates: start: 20150918
  30. HYDROMORPHONE HCL [Concomitant]
     Active Substance: HYDROMORPHONE HYDROCHLORIDE
     Indication: PRODUCT USED FOR UNKNOWN INDICATION
     Dosage: UNK
     Dates: end: 20111201
  31. XYZAL [Concomitant]
     Active Substance: LEVOCETIRIZINE DIHYDROCHLORIDE
     Indication: PRODUCT USED FOR UNKNOWN INDICATION
     Dosage: UNK
     Dates: end: 20130101

REACTIONS (7)
  - Autoimmune disorder [Not Recovered/Not Resolved]
  - Connective tissue disorder [Not Recovered/Not Resolved]
  - Inappropriate schedule of drug administration [Unknown]
  - Pain [Not Recovered/Not Resolved]
  - Unevaluable event [Not Recovered/Not Resolved]
  - Fibromyalgia [Not Recovered/Not Resolved]
  - Prescribed overdose [Unknown]
